FAERS Safety Report 8011703-4 (Version None)
Quarter: 2011Q4

REPORT INFORMATION
  Report Type: 
  Country: None (occurrence: None)
  Receive Date: 20111228
  Receipt Date: 20111222
  Transmission Date: 20120403
  Serious: Yes (Hospitalization)
  Sender: FDA-Public Use
  Company Number: PHHO2011US020386

PATIENT
  Sex: Male
  Weight: 107.9 kg

DRUGS (2)
  1. BORTEZOMIB [Suspect]
     Indication: MANTLE CELL LYMPHOMA
     Dosage: 2.94 MG ON DAY 1,4,8,11.
     Route: 042
     Dates: start: 20111122
  2. AFINITOR [Suspect]
     Indication: MANTLE CELL LYMPHOMA
     Dosage: 5 MG, QD
     Route: 048
     Dates: start: 20111011

REACTIONS (2)
  - HYPOXIA [None]
  - PLEURAL EFFUSION [None]
